FAERS Safety Report 9805606 (Version 1)
Quarter: 2014Q1

REPORT INFORMATION
  Report Type: Spontaneous
  Country: US (occurrence: US)
  Receive Date: 20140109
  Receipt Date: 20140109
  Transmission Date: 20141002
  Serious: Yes (Death, Hospitalization)
  Sender: FDA-Public Use
  Company Number: US-BAYER-2014-002460

PATIENT
  Age: 32 Year
  Sex: Female

DRUGS (4)
  1. PARACETAMOL + DIPHENHYDRAMINE [Suspect]
     Route: 048
  2. LITHIUM [Suspect]
     Route: 048
  3. QUETIAPINE [Suspect]
     Route: 048
  4. ZOPICLONE [Suspect]
     Route: 048

REACTIONS (2)
  - Toxicity to various agents [Fatal]
  - Overdose [Fatal]
